FAERS Safety Report 5894949-0 (Version None)
Quarter: 2008Q3

REPORT INFORMATION
  Report Type: 
  Country: None (occurrence: None)
  Receive Date: 20080924
  Receipt Date: 20080918
  Transmission Date: 20090109
  Serious: Yes (Other)
  Sender: FDA-Public Use
  Company Number: PHHY2008IT08693

PATIENT
  Sex: Male

DRUGS (1)
  1. TEGRETOL [Suspect]
     Dosage: UNK
     Dates: start: 20080501, end: 20080514

REACTIONS (5)
  - DYSPNOEA [None]
  - TACHYCARDIA [None]
  - TEMPORAL LOBE EPILEPSY [None]
  - TRANSAMINASES INCREASED [None]
  - URTICARIA [None]
